FAERS Safety Report 5735371-7 (Version None)
Quarter: 2008Q2

REPORT INFORMATION
  Report Type: 
  Country: None (occurrence: None)
  Receive Date: 20080508
  Receipt Date: 20080508
  Transmission Date: 20081010
  Serious: Yes (Disabling)
  Sender: FDA-Public Use
  Company Number: None

PATIENT
  Age: 45 Year
  Sex: Male
  Weight: 90.7194 kg

DRUGS (2)
  1. CREST PRO HEALTH [Suspect]
     Indication: DENTAL DISORDER PROPHYLAXIS
     Dosage: .5 OZ  5 TIMES DAILY
     Dates: start: 20040110, end: 20080509
  2. CREST PRO HEALTH NIGHT [Suspect]

REACTIONS (1)
  - TOOTH DISCOLOURATION [None]
